FAERS Safety Report 8971391 (Version 1)
Quarter: 2012Q4

REPORT INFORMATION
  Report Type: Report from Study
  Country: NL (occurrence: NL)
  Receive Date: 20121218
  Receipt Date: 20121218
  Transmission Date: 20130627
  Serious: Yes (Hospitalization)
  Sender: FDA-Public Use
  Company Number: NL-B.I. PHARMACEUTICALS,INC./RIDGEFIELD-2012-NL-00538NL

PATIENT
  Sex: Male
  Weight: 89 kg

DRUGS (5)
  1. PERSANTIN [Suspect]
     Dosage: 200 mg
     Dates: start: 2010, end: 201207
  2. ACETYLSALICYLZUUR CARDIO [Concomitant]
     Dosage: 80 mg
     Dates: start: 2009
  3. ALLOPURINOL [Concomitant]
     Dosage: 100 mg
     Dates: start: 1994
  4. LISINOPRIL [Concomitant]
     Dosage: 10 mg
     Dates: start: 1996
  5. PRAVASTATINE [Concomitant]
     Dosage: 40 mg
     Dates: start: 1995

REACTIONS (1)
  - Haemorrhage [Recovered/Resolved]
